FAERS Safety Report 6687336-9 (Version None)
Quarter: 2010Q2

REPORT INFORMATION
  Report Type: 
  Country: None (occurrence: None)
  Receive Date: 20100419
  Receipt Date: 20100408
  Transmission Date: 20101027
  Serious: Yes (Death)
  Sender: FDA-Public Use
  Company Number: US-BAXTER-2010BH009097

PATIENT
  Age: 49 Year
  Sex: Male

DRUGS (5)
  1. DIANEAL [Suspect]
     Indication: PERITONEAL DIALYSIS
     Route: 033
     Dates: end: 20090701
  2. DIANEAL [Suspect]
     Indication: PERITONEAL DIALYSIS
     Route: 033
     Dates: start: 20070601
  3. DIANEAL [Suspect]
     Route: 033
     Dates: start: 20070601
  4. DIANEAL [Suspect]
     Route: 033
     Dates: start: 20090701, end: 20100406
  5. DIANEAL [Suspect]
     Route: 033
     Dates: start: 20090701, end: 20100406

REACTIONS (2)
  - CEREBROVASCULAR ACCIDENT [None]
  - SEPSIS [None]
